FAERS Safety Report 16756422 (Version 1)
Quarter: 2019Q3

REPORT INFORMATION
  Report Type: Spontaneous
  Country: GB (occurrence: GB)
  Receive Date: 20190829
  Receipt Date: 20190829
  Transmission Date: 20191005
  Serious: Yes (Life-Threatening, Hospitalization, Other)
  Sender: FDA-Public Use
  Company Number: GB-MYLANLABS-2019M1080605

PATIENT
  Age: 57 Year
  Sex: Male

DRUGS (16)
  1. RAMIPRIL. [Suspect]
     Active Substance: RAMIPRIL
     Indication: PRODUCT USED FOR UNKNOWN INDICATION
     Dosage: UNK
     Route: 065
  2. ATROPINE. [Suspect]
     Active Substance: ATROPINE
     Indication: BRADYCARDIA
  3. DILTIAZEM. [Suspect]
     Active Substance: DILTIAZEM
     Indication: PRODUCT USED FOR UNKNOWN INDICATION
     Dosage: UNK
     Route: 065
  4. ATORVASTATIN [Suspect]
     Active Substance: ATORVASTATIN
     Indication: PRODUCT USED FOR UNKNOWN INDICATION
     Dosage: UNK
     Route: 065
  5. ATROPINE. [Suspect]
     Active Substance: ATROPINE
     Indication: ATRIAL FIBRILLATION
  6. GLUCAGON. [Suspect]
     Active Substance: GLUCAGON
     Indication: BRADYCARDIA
  7. DOBUTAMINE [Suspect]
     Active Substance: DOBUTAMINE HYDROCHLORIDE
     Indication: BRADYCARDIA
  8. APIXABAN [Suspect]
     Active Substance: APIXABAN
     Indication: PRODUCT USED FOR UNKNOWN INDICATION
     Dosage: UNK
     Route: 065
  9. EPINEPHRINE. [Suspect]
     Active Substance: EPINEPHRINE
     Indication: ATRIAL FIBRILLATION
  10. DOBUTAMINE [Suspect]
     Active Substance: DOBUTAMINE HYDROCHLORIDE
     Indication: ATRIAL FIBRILLATION
  11. EPINEPHRINE. [Suspect]
     Active Substance: EPINEPHRINE
     Indication: HYPOTENSION
     Dosage: UNK
     Route: 065
  12. DOBUTAMINE [Suspect]
     Active Substance: DOBUTAMINE HYDROCHLORIDE
     Indication: HYPOTENSION
     Dosage: UNK
     Route: 065
  13. BISOPROLOL [Suspect]
     Active Substance: BISOPROLOL
     Indication: PRODUCT USED FOR UNKNOWN INDICATION
     Dosage: UNK
     Route: 065
  14. EPINEPHRINE. [Suspect]
     Active Substance: EPINEPHRINE
     Indication: BRADYCARDIA
  15. ATROPINE. [Suspect]
     Active Substance: ATROPINE
     Indication: HYPOTENSION
     Dosage: UNK
     Route: 065
  16. GLUCAGON. [Suspect]
     Active Substance: GLUCAGON
     Indication: HYPOTENSION
     Route: 065

REACTIONS (7)
  - Hypotension [Recovering/Resolving]
  - Bradycardia [Recovering/Resolving]
  - Drug ineffective [Unknown]
  - Intentional overdose [Recovering/Resolving]
  - Atrial fibrillation [Recovering/Resolving]
  - Oliguria [Recovering/Resolving]
  - Loss of consciousness [Recovering/Resolving]
